FAERS Safety Report 4381778-2 (Version None)
Quarter: 2004Q2

REPORT INFORMATION
  Report Type: 
  Country: None (occurrence: None)
  Receive Date: 20040615
  Receipt Date: 20040604
  Transmission Date: 20050107
  Serious: Yes (Death, Hospitalization)
  Sender: FDA-Public Use
  Company Number: FR-JNFOC-20040200984

PATIENT
  Age: 75 Year
  Sex: Female
  Weight: 40 kg

DRUGS (8)
  1. REMICADE [Suspect]
     Indication: RHEUMATOID ARTHRITIS
     Dosage: 150 MG, 1 IN 1 DAY, INTRAVENOUS; SEE IMAGE
     Dates: start: 20031229, end: 20031229
  2. REMICADE [Suspect]
     Indication: RHEUMATOID ARTHRITIS
     Dosage: 150 MG, 1 IN 1 DAY, INTRAVENOUS; SEE IMAGE
     Dates: start: 20040112, end: 20040112
  3. HUMIRA [Suspect]
     Dosage: 80 MG, 1 IN 1 MONTH, SUBCUTANEOUS
     Route: 058
     Dates: start: 20030915, end: 20031215
  4. PREDNISONE TAB [Concomitant]
  5. OROCAL D3 (LEKOVIT CA) [Concomitant]
  6. OMEPRAZOLE [Concomitant]
  7. ARAVA [Concomitant]
  8. PREDNISOLONE [Concomitant]

REACTIONS (16)
  - COMA [None]
  - CYSTITIS [None]
  - FAECAL INCONTINENCE [None]
  - HERPES SIMPLEX [None]
  - HYPERAESTHESIA [None]
  - HYPERCALCAEMIA [None]
  - PERITONEAL TUBERCULOSIS [None]
  - PLEURAL EFFUSION [None]
  - PULMONARY EMBOLISM [None]
  - PULMONARY TUBERCULOSIS [None]
  - PYREXIA [None]
  - SENSORIMOTOR DISORDER [None]
  - TUBERCULOSIS [None]
  - TUBERCULOSIS LIVER [None]
  - URINARY INCONTINENCE [None]
  - WEIGHT DECREASED [None]
